FAERS Safety Report 8845877 (Version 1)
Quarter: 2012Q4

REPORT INFORMATION
  Report Type: Report from Study
  Country: CA (occurrence: CA)
  Receive Date: 20121017
  Receipt Date: 20121017
  Transmission Date: 20130627
  Serious: Yes (Other)
  Sender: FDA-Public Use
  Company Number: CA-ROCHE-1138595

PATIENT
  Age: 82 Year
  Sex: Male

DRUGS (8)
  1. RITUXIMAB [Suspect]
     Indication: RHEUMATOID ARTHRITIS
     Route: 042
     Dates: start: 20120718
  2. PREDNISONE [Concomitant]
  3. TYLENOL #3 (CANADA) [Concomitant]
  4. CANDESARTAN [Concomitant]
  5. METOPROLOL [Concomitant]
  6. ATORVASTATIN [Concomitant]
  7. RABEPRAZOLE [Concomitant]
  8. AZATHIOPRINE [Concomitant]

REACTIONS (5)
  - Respiratory rate increased [Unknown]
  - Dyspnoea [Recovered/Resolved]
  - Epigastric discomfort [Unknown]
  - Heart rate increased [Unknown]
  - Blood pressure increased [Unknown]
